FAERS Safety Report 12602560 (Version 4)
Quarter: 2016Q4

REPORT INFORMATION
  Report Type: Report from Study
  Country: AR (occurrence: AR)
  Receive Date: 20160728
  Receipt Date: 20161010
  Transmission Date: 20170207
  Serious: Yes (Other)
  Sender: FDA-Public Use
  Company Number: PHHY2016AR092024

PATIENT
  Age: 60 Year
  Sex: Female

DRUGS (11)
  1. INDAPAMIDE. [Concomitant]
     Active Substance: INDAPAMIDE
     Indication: POLYURIA
     Dosage: (SINCE 10 YEARS AGO)
     Route: 065
  2. TIBOLONE [Concomitant]
     Active Substance: TIBOLONE
     Indication: PRODUCT USED FOR UNKNOWN INDICATION
     Route: 065
  3. RASILEZ [Suspect]
     Active Substance: ALISKIREN
     Indication: RENAL DISORDER
     Dosage: 300 MG, UNK
     Route: 065
     Dates: start: 20160525
  4. LEVOTHYROXINE. [Concomitant]
     Active Substance: LEVOTHYROXINE
     Indication: PRODUCT USED FOR UNKNOWN INDICATION
     Dosage: 100 MG, UNK
     Route: 065
  5. CLONAZEPAM. [Concomitant]
     Active Substance: CLONAZEPAM
     Indication: PRODUCT USED FOR UNKNOWN INDICATION
     Dosage: 1.5 MG, UNK
     Route: 065
  6. RASILEZ [Suspect]
     Active Substance: ALISKIREN
     Dosage: 2 DF, QD
     Route: 065
  7. RASILEZ [Suspect]
     Active Substance: ALISKIREN
     Dosage: 1 DF, QD
     Route: 065
     Dates: end: 20160926
  8. INDAPAMIDE. [Concomitant]
     Active Substance: INDAPAMIDE
     Indication: HYPERCALCIURIA
  9. RASILEZ [Suspect]
     Active Substance: ALISKIREN
     Indication: HYPERCALCIURIA
     Dosage: 1 DF, QD
     Route: 065
  10. RASILEZ [Suspect]
     Active Substance: ALISKIREN
     Indication: PROTEINURIA
     Dosage: 2 DF, QD (2 MONTHS AND 2 DAYS AGO)
     Route: 065
  11. DIOVAN [Suspect]
     Active Substance: VALSARTAN
     Indication: PRODUCT USED FOR UNKNOWN INDICATION
     Dosage: 80 OT, UNK
     Route: 065

REACTIONS (22)
  - Hypotension [Unknown]
  - Conversion disorder [Unknown]
  - Feeling of despair [Not Recovered/Not Resolved]
  - Stress [Unknown]
  - Immunodeficiency [Recovering/Resolving]
  - Condition aggravated [Unknown]
  - Urinary tract infection [Recovering/Resolving]
  - Insomnia [Unknown]
  - Tooth fracture [Not Recovered/Not Resolved]
  - Hypokinesia [Unknown]
  - Muscle spasms [Unknown]
  - Fatigue [Not Recovered/Not Resolved]
  - Dizziness [Unknown]
  - Influenza [Recovering/Resolving]
  - Malaise [Unknown]
  - Proteinuria [Not Recovered/Not Resolved]
  - Chest discomfort [Unknown]
  - Weight increased [Unknown]
  - Renal disorder [Unknown]
  - Toothache [Unknown]
  - Pyrexia [Unknown]
  - Product use issue [Unknown]

NARRATIVE: CASE EVENT DATE: 20160620
